FAERS Safety Report 9130013 (Version 2)
Quarter: 2013Q2

REPORT INFORMATION
  Report Type: Spontaneous
  Country: JP (occurrence: JP)
  Receive Date: 20130228
  Receipt Date: 20130405
  Transmission Date: 20140414
  Serious: Yes (Other)
  Sender: FDA-Public Use
  Company Number: JP-UCBSA-079502

PATIENT
  Age: 20 Year
  Sex: Female

DRUGS (4)
  1. E KEPPRA [Suspect]
     Indication: TEMPORAL LOBE EPILEPSY
     Dosage: UNKNOWN DOSE
     Route: 048
  2. E KEPPRA [Suspect]
     Indication: TEMPORAL LOBE EPILEPSY
     Route: 048
  3. SODIUM VALPROATE [Concomitant]
     Dosage: UNKNOWN DOSE
     Route: 048
  4. RIVOTRIL [Concomitant]
     Dosage: UNKNOWN DOSE
     Route: 048

REACTIONS (1)
  - Platelet count decreased [Recovered/Resolved]
